FAERS Safety Report 5066509-5 (Version None)
Quarter: 2006Q3

REPORT INFORMATION
  Report Type: 
  Country: None (occurrence: None)
  Receive Date: 20060801
  Receipt Date: 20060721
  Transmission Date: 20061208
  Serious: Yes (Hospitalization)
  Sender: FDA-Public Use
  Company Number: US-BRISTOL-MYERS SQUIBB COMPANY-13451026

PATIENT
  Age: 68 Year
  Sex: Male

DRUGS (12)
  1. ERBITUX [Suspect]
     Indication: COLORECTAL CANCER METASTATIC
  2. OXALIPLATIN [Suspect]
     Indication: RECTAL CANCER METASTATIC
  3. CAPECITABINE [Suspect]
     Indication: RECTAL CANCER METASTATIC
  4. AVASTIN [Suspect]
     Indication: COLORECTAL CANCER METASTATIC
  5. OXYCODONE HCL [Concomitant]
  6. ACETAMINOPHEN [Concomitant]
  7. M.V.I. [Concomitant]
  8. POTASSIUM CHLORIDE [Concomitant]
  9. FENTANYL [Concomitant]
  10. LOPRESSOR [Concomitant]
  11. METOPROLOL [Concomitant]
  12. HYDROCHLOROTHIAZIDE [Concomitant]

REACTIONS (2)
  - DIARRHOEA [None]
  - RECTAL HAEMORRHAGE [None]
